FAERS Safety Report 5729918-4 (Version None)
Quarter: 2008Q2

REPORT INFORMATION
  Report Type: 
  Country: None (occurrence: None)
  Receive Date: 20080502
  Receipt Date: 20080416
  Transmission Date: 20081010
  Serious: Yes (Other)
  Sender: FDA-Public Use
  Company Number: SPV1-2008-00850

PATIENT
  Sex: Male

DRUGS (6)
  1. ADDERALL XR 10 [Suspect]
     Indication: ATTENTION DEFICIT/HYPERACTIVITY DISORDER
  2. ADDERALL 10 [Suspect]
     Indication: ATTENTION DEFICIT/HYPERACTIVITY DISORDER
     Dosage: 30 MG TABLET, UNKNOWN FREQUENCY, ORAL
     Route: 048
     Dates: start: 19920101
  3. ADDERALL 10 [Suspect]
     Dosage: 30 MG, 3X/DAY:TID, ORAL
     Route: 048
  4. CLONAZEPAM [Concomitant]
  5. HYDROCODONE (HYDROCODONE) [Concomitant]
  6. SOMA [Concomitant]

REACTIONS (8)
  - ABNORMAL BEHAVIOUR [None]
  - ANXIETY [None]
  - IMPRISONMENT [None]
  - INTERVERTEBRAL DISC PROTRUSION [None]
  - POOR PERIPHERAL CIRCULATION [None]
  - RHEUMATOID ARTHRITIS [None]
  - ROAD TRAFFIC ACCIDENT [None]
  - SKIN DISCOLOURATION [None]
